FAERS Safety Report 25146167 (Version 3)
Quarter: 2025Q4

REPORT INFORMATION
  Report Type: Spontaneous
  Country: JP (occurrence: JP)
  Receive Date: 20250401
  Receipt Date: 20251128
  Transmission Date: 20260117
  Serious: Yes (Hospitalization)
  Sender: MERCK SHARP & DOHME LLC
  Company Number: JP-MSD-M2023-43115

PATIENT
  Age: 66 Year
  Sex: Male
  Weight: 55 kg

DRUGS (10)
  1. KEYTRUDA [Suspect]
     Active Substance: PEMBROLIZUMAB
     Indication: Renal cell carcinoma
     Dosage: DOSE DESCRIPTION : UNK
     Route: 041
     Dates: start: 202404
  2. KEYTRUDA [Suspect]
     Active Substance: PEMBROLIZUMAB
     Indication: Renal cell carcinoma
     Dosage: DOSE DESCRIPTION : 200 MILLIGRAM, Q3W?DAILY DOSE : 9.4 MILLIGRAM?REGIMEN DOSE : 400  MILLIGRAM
     Route: 041
     Dates: start: 20230626, end: 20230719
  3. KEYTRUDA [Suspect]
     Active Substance: PEMBROLIZUMAB
     Indication: Renal cell carcinoma
     Dosage: DOSE DESCRIPTION : UNK
     Route: 041
     Dates: start: 202311
  4. LENVATINIB MESYLATE [Suspect]
     Active Substance: LENVATINIB MESYLATE
     Indication: Renal cell carcinoma
     Dosage: DOSE DESCRIPTION : 14 MILLIGRAM, QD?DAILY DOSE : 14 MILLIGRAM?REGIMEN DOSE : 630  MILLIGRAM
     Route: 048
     Dates: start: 20230626, end: 20230809
  5. LENVATINIB MESYLATE [Suspect]
     Active Substance: LENVATINIB MESYLATE
     Indication: Renal cell carcinoma
     Dosage: DOSE DESCRIPTION : UNK
     Route: 048
     Dates: start: 202309, end: 202309
  6. ADALAT [Concomitant]
     Active Substance: NIFEDIPINE
     Dosage: DOSE DESCRIPTION : UNK?CONCENTRATION: 40 MILLIGRAM
  7. CELECOXIB [Concomitant]
     Active Substance: CELECOXIB
     Dosage: DOSE DESCRIPTION : UNK?CONCENTRATION: 100 MILLIGRAM
  8. BETAMETHASONE DIPROPIONATE [Concomitant]
     Active Substance: BETAMETHASONE DIPROPIONATE
  9. ALLELOCK [Concomitant]
     Active Substance: OLOPATADINE HYDROCHLORIDE
  10. PREDONINE [Concomitant]
     Active Substance: PREDNISOLONE

REACTIONS (5)
  - Cranial nerve disorder [Unknown]
  - Facial paralysis [Recovering/Resolving]
  - Rash [Recovering/Resolving]
  - Therapy partial responder [Unknown]
  - Stomatitis [Recovered/Resolved]

NARRATIVE: CASE EVENT DATE: 20230809
